FAERS Safety Report 4380343-0 (Version None)
Quarter: 2004Q2

REPORT INFORMATION
  Report Type: 
  Country: None (occurrence: None)
  Receive Date: 20040608
  Receipt Date: 20040524
  Transmission Date: 20050107
  Serious: Yes (Hospitalization, Other)
  Sender: FDA-Public Use
  Company Number: 2004S1001545

PATIENT
  Age: 65 Year
  Sex: Female

DRUGS (4)
  1. METOPROLOL TARTRATE [Suspect]
     Indication: HYPERTENSION
     Dosage: 100MG/DAY, ORAL
     Route: 048
     Dates: start: 20020328, end: 20020506
  2. ATORVASTATIN CALCIUM [Concomitant]
  3. METFORMIN HCL [Concomitant]
  4. QUINAPRIL HCL [Concomitant]

REACTIONS (1)
  - CARDIAC FAILURE CONGESTIVE [None]
